FAERS Safety Report 9638340 (Version 2)
Quarter: 2013Q4

REPORT INFORMATION
  Report Type: Spontaneous
  Country: US (occurrence: US)
  Receive Date: 20131022
  Receipt Date: 20131223
  Transmission Date: 20140711
  Serious: Yes (Hospitalization)
  Sender: FDA-Public Use
  Company Number: US-GLAXOSMITHKLINE-A1046369A

PATIENT
  Age: 46 Year
  Sex: Female

DRUGS (1)
  1. REQUIP XL [Suspect]
     Indication: RESTLESS LEGS SYNDROME
     Dosage: 6MG UNKNOWN
     Route: 065
     Dates: start: 20110721

REACTIONS (2)
  - Intestinal operation [Unknown]
  - Gallbladder operation [Unknown]
